FAERS Safety Report 4767850-3 (Version None)
Quarter: 2005Q3

REPORT INFORMATION
  Report Type: 
  Country: None (occurrence: None)
  Receive Date: 20050912
  Receipt Date: 20050909
  Transmission Date: 20060218
  Serious: Yes (Hospitalization)
  Sender: FDA-Public Use
  Company Number: S04-USA-06025-01

PATIENT
  Age: 37 Year
  Sex: Female
  Weight: 81.6475 kg

DRUGS (5)
  1. LEXAPRO [Suspect]
     Indication: DEPRESSION
     Dosage: 20 MG QD PO
     Route: 048
     Dates: start: 20020101, end: 20040826
  2. LEXAPRO [Suspect]
     Indication: OBSESSIVE-COMPULSIVE DISORDER
     Dosage: 20 MG QD PO
     Route: 048
     Dates: start: 20020101, end: 20040826
  3. LEXAPRO [Suspect]
     Indication: DEPRESSION
     Dosage: 20 MG QD PO
     Route: 048
  4. LEXAPRO [Suspect]
     Indication: OBSESSIVE-COMPULSIVE DISORDER
     Dosage: 20 MG QD PO
     Route: 048
  5. PRENATAL VITAMINS [Concomitant]

REACTIONS (8)
  - ASTHMA [None]
  - DRUG EXPOSURE DURING PREGNANCY [None]
  - FORCEPS DELIVERY [None]
  - LABOUR COMPLICATION [None]
  - LABOUR INDUCTION [None]
  - MUSCLE STRAIN [None]
  - PREMATURE LABOUR [None]
  - VAGINAL HAEMORRHAGE [None]
